FAERS Safety Report 24677009 (Version 1)
Quarter: 2024Q4

REPORT INFORMATION
  Report Type: Spontaneous
  Country: US (occurrence: US)
  Receive Date: 20241128
  Receipt Date: 20241128
  Transmission Date: 20250115
  Serious: Yes (Death, Life-Threatening, Hospitalization, Other)
  Sender: AMGEN
  Company Number: US-AMGEN-USASP2024231951

PATIENT

DRUGS (2)
  1. BEVACIZUMAB [Suspect]
     Active Substance: BEVACIZUMAB
     Indication: Cervix carcinoma recurrent
     Dosage: UNK
     Route: 065
  2. BEVACIZUMAB [Suspect]
     Active Substance: BEVACIZUMAB
     Indication: Endometrial cancer recurrent

REACTIONS (3)
  - Post procedural complication [Fatal]
  - Unevaluable event [Unknown]
  - Off label use [Unknown]
